FAERS Safety Report 9300685 (Version 3)
Quarter: 2013Q4

REPORT INFORMATION
  Report Type: Spontaneous
  Country: US (occurrence: None)
  Receive Date: 20130107
  Receipt Date: 20131226
  Transmission Date: 20140711
  Serious: Yes (Other)
  Sender: FDA-Public Use
  Company Number: PHEH2012US022031

PATIENT
  Age: 41 Year
  Sex: Female

DRUGS (13)
  1. GILENYA [Suspect]
     Indication: MULTIPLE SCLEROSIS
     Dosage: 0.5 MG, QD, ORAL
     Route: 048
     Dates: start: 20120821
  2. LYRICA (PREGABALIN) [Concomitant]
  3. ATENOLOL (ATENOLOL) [Concomitant]
  4. METFORMIN (METFORMIN) [Concomitant]
  5. BACLOFEN (BACLOFEN) [Concomitant]
  6. FLUOXETINE HYDROCHLORIDE (FLUOXETINE HYDROCHLORIDE) [Concomitant]
  7. PRAVASTATIN SODIUM (PRAVASTATIN SODIUM) [Concomitant]
  8. TOPIRAMATE (TOPIRAMATE) [Concomitant]
  9. LISINOPRIL (LISINOPRIL) [Concomitant]
  10. OXYCODONE/ACETAMINOPHEN (OXYCODONE HYDROCHLORIDE, PARACETAMOL) [Concomitant]
  11. LEVOTHYROXINE (LEVOTHYROXINE) [Concomitant]
  12. VITAMIN D3 (COLECALCIFEROL) [Concomitant]
  13. OMEPRAZOLE (OMEPRAZOLE) [Concomitant]

REACTIONS (6)
  - Kidney infection [None]
  - Dehydration [None]
  - Influenza like illness [None]
  - Vertigo [None]
  - Urinary tract infection [None]
  - Depression [None]
